FAERS Safety Report 6249220-4 (Version None)
Quarter: 2009Q2

REPORT INFORMATION
  Report Type: 
  Country: None (occurrence: None)
  Receive Date: 20090629
  Receipt Date: 20090624
  Transmission Date: 20091009
  Serious: Yes (Death)
  Sender: FDA-Public Use
  Company Number: PHHY2009CA25059

PATIENT
  Sex: Male

DRUGS (5)
  1. GLEEVEC [Suspect]
     Indication: CHORDOMA
     Dosage: 800 MG DAILY
     Route: 048
     Dates: start: 20080207, end: 20090617
  2. DEXAMETHASONE [Concomitant]
     Dosage: 4 MG, BID
     Route: 048
  3. HYDROMORPHONE HCL [Concomitant]
     Dosage: 3 MG, BID
  4. FRAGMIN [Concomitant]
     Dosage: 12000 IU DAILY
     Route: 058
  5. RANITIDINE [Concomitant]
     Dosage: 150 MG, BID
     Route: 048

REACTIONS (1)
  - ACUTE MYOCARDIAL INFARCTION [None]
